FAERS Safety Report 9843564 (Version 1)
Quarter: 2013Q4

REPORT INFORMATION
  Report Type: Spontaneous
  Country: US (occurrence: None)
  Receive Date: 20131223
  Receipt Date: 20131223
  Transmission Date: 20140711
  Serious: Yes (Other)
  Sender: FDA-Public Use
  Company Number: 219584LEO

PATIENT
  Age: 81 Year
  Sex: Male

DRUGS (4)
  1. PICATO (0.015 %, GEL) [Suspect]
     Indication: ACTINIC KERATOSIS
     Dosage: (1 IN 1 D), TOPICAL
     Route: 061
     Dates: start: 20121104, end: 20121106
  2. HYZAAR (HYZAAR/01284801/) [Concomitant]
  3. SYNTHROID (LEVOTHYROXINE SODIUM) [Concomitant]
  4. PREVACID (LANSOPRAZOLE) [Concomitant]

REACTIONS (3)
  - Erythema [None]
  - Dry skin [None]
  - Skin exfoliation [None]
